FAERS Safety Report 9282249 (Version 1)
Quarter: 2013Q2

REPORT INFORMATION
  Report Type: Spontaneous
  Country: US (occurrence: US)
  Receive Date: 20130510
  Receipt Date: 20130510
  Transmission Date: 20140414
  Serious: No
  Sender: FDA-Public Use
  Company Number: US-PFIZER INC-2013144436

PATIENT
  Age: 54 Year
  Sex: Female
  Weight: 64.85 kg

DRUGS (9)
  1. LYRICA [Suspect]
     Indication: NEURALGIA
     Dosage: 75 MG, UNK
     Route: 048
     Dates: start: 201104
  2. LYRICA [Suspect]
     Dosage: 150 MG, 2X/DAY
     Route: 048
  3. LYRICA [Suspect]
     Dosage: 150 MG, 1X/DAY
     Route: 048
     Dates: end: 20130506
  4. ESTROGEN [Concomitant]
     Dosage: UNK
  5. TYLENOL [Concomitant]
     Dosage: UNK
  6. NAPROXEN [Concomitant]
     Dosage: UNK
  7. NEXIUM [Concomitant]
     Indication: GASTROOESOPHAGEAL REFLUX DISEASE
     Dosage: UNK
  8. TRAZODONE [Concomitant]
     Indication: PAIN
     Dosage: 50 MG, 1X/DAY (AT NIGHT)
  9. ULTRAM [Concomitant]
     Dosage: UNK

REACTIONS (7)
  - Drug withdrawal syndrome [Not Recovered/Not Resolved]
  - Hot flush [Not Recovered/Not Resolved]
  - Abdominal pain [Not Recovered/Not Resolved]
  - Diarrhoea [Not Recovered/Not Resolved]
  - Irritability [Not Recovered/Not Resolved]
  - Pain [Not Recovered/Not Resolved]
  - Intentional drug misuse [Unknown]
